FAERS Safety Report 10700740 (Version 1)
Quarter: 2014Q4

REPORT INFORMATION
  Report Type: Spontaneous
  Country: US (occurrence: None)
  Receive Date: 20141223
  Receipt Date: 20141223
  Transmission Date: 20150529
  Serious: No
  Sender: FDA-Public Use
  Company Number: 1000071321

PATIENT
  Age: 62 Year
  Sex: Female

DRUGS (14)
  1. LINZESS [Suspect]
     Active Substance: LINACLOTIDE
     Indication: CONSTIPATION
     Route: 048
     Dates: start: 201409, end: 201409
  2. SYNTHROID (OEVOTHYROXINE SODIUM) [Concomitant]
  3. KLONOPIN [Concomitant]
     Active Substance: CLONAZEPAM
  4. SPIRIVA (TIOTROPIUM BROMDE) [Concomitant]
  5. ADVAIR (FLUTICASONE , SALMETEROL) [Concomitant]
  6. VALTREX [Concomitant]
     Active Substance: VALACYCLOVIR HYDROCHLORIDE
  7. FLUCONAZOLE. [Concomitant]
     Active Substance: FLUCONAZOLE
  8. PROAIR HFA (SALUTAMOL SULFATE) [Concomitant]
  9. SEROQUEL [Concomitant]
     Active Substance: QUETIAPINE FUMARATE
  10. TRAZODONE [Concomitant]
     Active Substance: TRAZODONE HYDROCHLORIDE
  11. MORPHINE [Concomitant]
     Active Substance: MORPHINE
  12. VAGIFEM (ESTRADIOL) [Concomitant]
  13. ESTRACE (ESTRADIOL) [Concomitant]
  14. LYRICA (PREGAMBLIN) [Concomitant]

REACTIONS (3)
  - Off label use [None]
  - Diarrhoea [None]
  - Flatulence [None]

NARRATIVE: CASE EVENT DATE: 201409
